FAERS Safety Report 6539016-8 (Version None)
Quarter: 2010Q1

REPORT INFORMATION
  Report Type: 
  Country: None (occurrence: None)
  Receive Date: 20100115
  Receipt Date: 20100107
  Transmission Date: 20100710
  Serious: Yes (Hospitalization, Other)
  Sender: FDA-Public Use
  Company Number: US-SANOFI-AVENTIS-2009SA008840

PATIENT
  Age: 67 Year
  Sex: Male
  Weight: 77.27 kg

DRUGS (9)
  1. PLAVIX [Suspect]
     Route: 048
     Dates: start: 20090501, end: 20091125
  2. PLAVIX [Suspect]
     Route: 048
     Dates: start: 20091201
  3. ASPIRIN [Concomitant]
  4. QUINAPRIL [Concomitant]
  5. COREG [Concomitant]
  6. SPIRONOLACTONE [Concomitant]
  7. CRESTOR [Concomitant]
  8. METFORMIN HYDROCHLORIDE [Concomitant]
  9. ALL OTHER THERAPEUTIC PRODUCTS [Concomitant]
     Indication: ASTHMA

REACTIONS (7)
  - APNOEA [None]
  - BRADYARRHYTHMIA [None]
  - HEART RATE DECREASED [None]
  - HYPOTENSION [None]
  - LOSS OF CONSCIOUSNESS [None]
  - RESPIRATORY ARREST [None]
  - SYNCOPE [None]
